FAERS Safety Report 9098082 (Version 1)
Quarter: 2013Q1

REPORT INFORMATION
  Report Type: Spontaneous
  Country: US (occurrence: US)
  Receive Date: 20130213
  Receipt Date: 20130213
  Transmission Date: 20140127
  Serious: Yes (Life-Threatening, Hospitalization)
  Sender: FDA-Public Use
  Company Number: PHEH2013US003568

PATIENT
  Sex: Female

DRUGS (9)
  1. DIOVAN HCT [Suspect]
     Dosage: 1 DF (320 VALS AND 12.5 OF HYDRO), UNK
  2. GLYBURIDE (MICRONIZED) [Concomitant]
     Dosage: 6 MG, UNK
  3. JANUVIA [Concomitant]
     Dosage: 100 MG, UNK
  4. VICTOZA [Concomitant]
     Indication: DIABETES MELLITUS
     Dosage: UNK UKN, UNK
  5. ECOTRIN [Concomitant]
     Dosage: 81 MG, UNK
  6. OXYBUTYNIN [Concomitant]
     Dosage: 5 MG, UNK
  7. ASPIRIN [Concomitant]
  8. METHYLPREDNISOLONE [Concomitant]
  9. PRENATAL VITAMINS [Concomitant]

REACTIONS (3)
  - Feeling abnormal [Unknown]
  - Renal disorder [Recovering/Resolving]
  - Rash [Unknown]
